FAERS Safety Report 4290941-0 (Version None)
Quarter: 2004Q1

REPORT INFORMATION
  Report Type: 
  Country: None (occurrence: None)
  Receive Date: 20040211
  Receipt Date: 20031016
  Transmission Date: 20041129
  Serious: Yes (Other)
  Sender: FDA-Public Use
  Company Number: US-GLAXOSMITHKLINE-A0430621A

PATIENT
  Sex: Female

DRUGS (1)
  1. PAXIL [Suspect]
     Dosage: 20MG PER DAY
     Route: 048

REACTIONS (3)
  - CATARACT [None]
  - DIPLOPIA [None]
  - EYELID MARGIN CRUSTING [None]
